FAERS Safety Report 6753854-8 (Version None)
Quarter: 2010Q2

REPORT INFORMATION
  Report Type: 
  Country: None (occurrence: None)
  Receive Date: 20100603
  Receipt Date: 20100521
  Transmission Date: 20101027
  Serious: Yes (Hospitalization)
  Sender: FDA-Public Use
  Company Number: TR-ELI_LILLY_AND_COMPANY-TR201005005645

PATIENT
  Sex: Male
  Weight: 59.8 kg

DRUGS (10)
  1. PEMETREXED [Suspect]
     Indication: NON-SMALL CELL LUNG CANCER
     Dosage: 500 MG/M2, DAY 1 EVERY 21 DAYS
     Route: 042
     Dates: start: 20100331
  2. CISPLATIN [Suspect]
     Indication: NON-SMALL CELL LUNG CANCER
     Dosage: 75 MG/M2, DAY 1 EVERY 21 DAYS
     Route: 042
     Dates: start: 20100331
  3. FOLIC ACID [Concomitant]
     Indication: PROPHYLAXIS
     Dates: start: 20100325
  4. VITAMIN B-12 [Concomitant]
     Indication: PROPHYLAXIS
     Dates: start: 20100325, end: 20100511
  5. DEXAMETHASONE [Concomitant]
     Indication: PROPHYLAXIS
     Dates: start: 20100330, end: 20100423
  6. GLUCOBAY [Concomitant]
     Indication: DIABETES MELLITUS
     Dates: start: 19910101
  7. GLUCOTROL [Concomitant]
     Indication: DIABETES MELLITUS
     Dates: start: 19910101
  8. PLAVIX [Concomitant]
     Indication: HYPERTENSION
     Dates: start: 19910101
  9. METOPROLOL TARTRATE [Concomitant]
     Indication: HYPERTENSION
     Dates: start: 19910101
  10. DELIX [Concomitant]
     Indication: HYPERTENSION
     Dates: start: 19910101

REACTIONS (1)
  - THROMBOPHLEBITIS [None]
